FAERS Safety Report 7093252-3 (Version None)
Quarter: 2010Q4

REPORT INFORMATION
  Report Type: 
  Country: None (occurrence: None)
  Receive Date: 20101018
  Receipt Date: 20100827
  Transmission Date: 20110411
  Serious: Yes (Disabling, Other)
  Sender: FDA-Public Use
  Company Number: US-WYE-H01299607

PATIENT
  Age: 54 Year
  Sex: Female

DRUGS (3)
  1. PREMARIN [Suspect]
  2. ESTRACE [Suspect]
  3. ESTRATEST [Suspect]

REACTIONS (1)
  - MYOCARDIAL INFARCTION [None]
